FAERS Safety Report 10612175 (Version 2)
Quarter: 2014Q4

REPORT INFORMATION
  Report Type: Spontaneous
  Country: US (occurrence: US)
  Receive Date: 20141127
  Receipt Date: 20141211
  Transmission Date: 20150529
  Serious: No
  Sender: FDA-Public Use
  Company Number: US-AMGEN INC.-USASP2014091455

PATIENT
  Age: 53 Year
  Sex: Female
  Weight: 68.04 kg

DRUGS (17)
  1. WELLBUTRIN [Concomitant]
     Active Substance: BUPROPION HYDROCHLORIDE
     Dosage: 150 MG, QD
  2. PROVENTIL                          /00139501/ [Concomitant]
     Dosage: 90 MCG 2 PUFFS FOUR TIMES DAILY IF NEEDED
  3. VITAMIN B12 [Concomitant]
     Active Substance: CYANOCOBALAMIN
     Indication: VITAMIN B12 DEFICIENCY
     Dosage: 1000 MCG/ML INJECT 1 ML INTO THE MUSCLE (IM) EVERY THIRTY DAYS.
     Route: 058
  4. VITAMIN D3 [Concomitant]
     Active Substance: CHOLECALCIFEROL
     Dosage: 5000 UNIT, QD
     Route: 048
  5. LEVSIN SL [Concomitant]
     Active Substance: HYOSCYAMINE SULFATE
     Dosage: 0.125 MG, AS NECESSARY
     Route: 060
  6. METHOTREXATE (METHOTREXATE SODIUM) [Concomitant]
     Active Substance: METHOTREXATE SODIUM
     Dosage: 25 MG/ML, QWK
     Route: 058
  7. CALCIUM                            /07357001/ [Concomitant]
     Dosage: 2 TABLET ONCE DAILY
     Route: 048
  8. ENBREL [Suspect]
     Active Substance: ETANERCEPT
     Indication: RHEUMATOID ARTHRITIS
     Dosage: 50 MG/ML, QWK
     Route: 058
     Dates: start: 20140820
  9. ESTRACE [Concomitant]
     Active Substance: ESTRADIOL
     Dosage: 1 MG, QD
     Route: 048
  10. CLARITIN [Concomitant]
     Active Substance: LORATADINE
     Dosage: 10 MG, QD
     Route: 048
  11. NORCO [Concomitant]
     Active Substance: ACETAMINOPHEN\HYDROCODONE BITARTRATE
     Dosage: 5-325 MG 2 TABLETS BY RNOUTH EVERY FOUR TO SIX HOURS AS NEEDED FOR
     Route: 048
     Dates: start: 20140509
  12. CARAFATE [Concomitant]
     Active Substance: SUCRALFATE
     Indication: GASTRIC ULCER
     Dosage: 1 G, QID
     Route: 048
  13. PRILOSEC [Concomitant]
     Active Substance: OMEPRAZOLE MAGNESIUM
     Indication: GASTRIC ULCER
     Dosage: 20 MG, QD
  14. PRILOSEC [Concomitant]
     Active Substance: OMEPRAZOLE MAGNESIUM
     Indication: EROSIVE OESOPHAGITIS
  15. KENALOG                            /00031902/ [Concomitant]
     Dosage: 0.1 %, BID
  16. COLACE [Concomitant]
     Active Substance: DOCUSATE SODIUM
     Dosage: 100 MG, BID
     Route: 048
  17. FOLVITE                            /00024201/ [Concomitant]
     Dosage: 1 MG, QD
     Route: 048

REACTIONS (1)
  - Pain in extremity [Unknown]
